FAERS Safety Report 7476393-8 (Version None)
Quarter: 2011Q2

REPORT INFORMATION
  Report Type: 
  Country: None (occurrence: None)
  Receive Date: 20110512
  Receipt Date: 20110504
  Transmission Date: 20111010
  Serious: Yes (Life-Threatening)
  Sender: FDA-Public Use
  Company Number: B0718432A

PATIENT
  Sex: Male

DRUGS (3)
  1. UNKNOWN MEDICATION [Suspect]
     Route: 065
  2. AVANDIA [Suspect]
     Route: 065
     Dates: start: 20050101
  3. AVANDAMET [Suspect]
     Route: 065
     Dates: start: 20050101

REACTIONS (5)
  - EMBOLISM [None]
  - ANGIOGRAM [None]
  - MYOCARDIAL INFARCTION [None]
  - SURGERY [None]
  - CHEST DISCOMFORT [None]
